FAERS Safety Report 8580570-2 (Version None)
Quarter: 2012Q3

REPORT INFORMATION
  Report Type: 
  Country: None (occurrence: None)
  Receive Date: 20120808
  Receipt Date: 20120710
  Transmission Date: 20120928
  Serious: Yes (Hospitalization, Other)
  Sender: FDA-Public Use
  Company Number: PHHY2012JP049956

PATIENT
  Age: 61 Year
  Sex: Female

DRUGS (4)
  1. RABEPRAZOLE SODIUM [Concomitant]
     Route: 048
  2. DIOVAN [Suspect]
     Indication: HYPERTENSION
     Dosage: UNK
     Route: 048
  3. LANDEL [Suspect]
     Route: 048
  4. PREDNISOLONE [Concomitant]

REACTIONS (5)
  - BLOOD UREA INCREASED [None]
  - BLOOD PRESSURE INCREASED [None]
  - BLOOD CREATININE INCREASED [None]
  - SMALL BOWEL ANGIOEDEMA [None]
  - ACUTE ABDOMEN [None]
